FAERS Safety Report 6892429-7 (Version None)
Quarter: 2010Q3

REPORT INFORMATION
  Report Type: 
  Country: None (occurrence: None)
  Receive Date: 20100731
  Receipt Date: 20080611
  Transmission Date: 20110219
  Serious: No
  Sender: FDA-Public Use
  Company Number: US-PFIZER INC-2008046468

PATIENT
  Sex: Male
  Weight: 68.04 kg

DRUGS (5)
  1. NEURONTIN [Suspect]
     Indication: NEUROPATHY PERIPHERAL
     Route: 048
     Dates: start: 20060101, end: 20080301
  2. SYNTHROID [Concomitant]
  3. AVAPRO [Concomitant]
  4. TRIAMTERENE [Concomitant]
  5. ANTIHYPERTENSIVES [Concomitant]

REACTIONS (2)
  - DRUG DOSE OMISSION [None]
  - DRUG INEFFECTIVE [None]
